FAERS Safety Report 15489427 (Version 3)
Quarter: 2018Q4

REPORT INFORMATION
  Report Type: Spontaneous
  Country: US (occurrence: US)
  Receive Date: 20181011
  Receipt Date: 20181217
  Transmission Date: 20190205
  Serious: Yes (Other)
  Sender: FDA-Public Use
  Company Number: US-PFIZER INC-2018408014

PATIENT
  Age: 87 Year
  Sex: Male

DRUGS (2)
  1. LYRICA [Suspect]
     Active Substance: PREGABALIN
     Indication: DIABETIC NEUROPATHY
     Dosage: 75 MG, THREE TIMES DAILY
     Route: 048
  2. WARFARIN [Concomitant]
     Active Substance: WARFARIN
     Dosage: 14-15 TABLETS IN THE MORNING, 8-10 AT 4PM AND 5-6 BEFORE BED

REACTIONS (9)
  - Drug effect incomplete [Unknown]
  - Ligament rupture [Unknown]
  - Ligament sprain [Unknown]
  - Pain in extremity [Unknown]
  - Arthropathy [Unknown]
  - Gait disturbance [Unknown]
  - Back pain [Recovered/Resolved]
  - Fall [Unknown]
  - Inappropriate schedule of product administration [Unknown]
